FAERS Safety Report 23827983 (Version 1)
Quarter: 2024Q2

REPORT INFORMATION
  Report Type: Spontaneous
  Country: US (occurrence: US)
  Receive Date: 20240507
  Receipt Date: 20240507
  Transmission Date: 20240716
  Serious: No
  Sender: FDA-Public Use
  Company Number: US-APOTEX-2023AP016144

PATIENT
  Sex: Female

DRUGS (1)
  1. HYDROCHLOROTHIAZIDE\TRIAMTERENE [Suspect]
     Active Substance: HYDROCHLOROTHIAZIDE\TRIAMTERENE
     Indication: Nephrolithiasis
     Dosage: UNK
     Route: 065

REACTIONS (3)
  - Oedema [Unknown]
  - Pain in extremity [Unknown]
  - Myalgia [Unknown]

NARRATIVE: CASE EVENT DATE: 20230101
